FAERS Safety Report 4576813-2 (Version None)
Quarter: 2005Q1

REPORT INFORMATION
  Report Type: 
  Country: None (occurrence: None)
  Receive Date: 20050207
  Receipt Date: 20050124
  Transmission Date: 20050727
  Serious: Yes (Other)
  Sender: FDA-Public Use
  Company Number: HQWYE857526JAN05

PATIENT
  Age: 50 Year
  Sex: Female
  Weight: 63.56 kg

DRUGS (1)
  1. PREMPRO [Suspect]
     Indication: HOT FLUSH
     Dosage: 0.625MG/ 2.5MG DAILY, ORAL
     Route: 048
     Dates: start: 20041101

REACTIONS (21)
  - ABDOMINAL PAIN [None]
  - ANXIETY [None]
  - BLOOD PRESSURE INCREASED [None]
  - CONDITION AGGRAVATED [None]
  - DECREASED APPETITE [None]
  - DEPRESSION [None]
  - DISEASE RECURRENCE [None]
  - FATIGUE [None]
  - FLATULENCE [None]
  - INSOMNIA [None]
  - IRRITABILITY [None]
  - LIBIDO DECREASED [None]
  - MENSTRUATION IRREGULAR [None]
  - NAUSEA [None]
  - SENSATION OF BLOOD FLOW [None]
  - SUICIDAL IDEATION [None]
  - VAGINAL DISCHARGE [None]
  - VAGINAL MYCOSIS [None]
  - VISUAL DISTURBANCE [None]
  - VOMITING [None]
  - WEIGHT DECREASED [None]
